FAERS Safety Report 5085869-2 (Version None)
Quarter: 2006Q3

REPORT INFORMATION
  Report Type: 
  Country: None (occurrence: None)
  Receive Date: 20060817
  Receipt Date: 20060807
  Transmission Date: 20061208
  Serious: Yes (Other)
  Sender: FDA-Public Use
  Company Number: T200600858

PATIENT
  Age: 72 Year
  Sex: Female

DRUGS (1)
  1. OPTIRAY 350 [Suspect]
     Indication: COMPUTERISED TOMOGRAM
     Dosage: 50 ML, SINGLE, INTRAVENOUS
     Route: 042
     Dates: start: 20060802, end: 20060802

REACTIONS (2)
  - HYPOAESTHESIA ORAL [None]
  - PHARYNGEAL OEDEMA [None]
